FAERS Safety Report 24327744 (Version 1)
Quarter: 2024Q3

REPORT INFORMATION
  Report Type: Spontaneous
  Country: FR (occurrence: None)
  Receive Date: 20240917
  Receipt Date: 20240917
  Transmission Date: 20241017
  Serious: Yes (Other)
  Sender: ASTRAZENECA
  Company Number: 2024A211144

PATIENT
  Age: 72 Year
  Sex: Male

DRUGS (11)
  1. OSIMERTINIB [Suspect]
     Active Substance: OSIMERTINIB
     Indication: Lung adenocarcinoma
     Route: 048
  2. OSIMERTINIB [Suspect]
     Active Substance: OSIMERTINIB
     Indication: Lung adenocarcinoma
     Route: 048
  3. DABRAFENIB [Suspect]
     Active Substance: DABRAFENIB
     Indication: Lung adenocarcinoma
     Dosage: 300.0MG UNKNOWN
  4. DABRAFENIB [Suspect]
     Active Substance: DABRAFENIB
     Indication: Lung adenocarcinoma
     Dosage: 100.0MG UNKNOWN
  5. DABRAFENIB [Suspect]
     Active Substance: DABRAFENIB
     Indication: Lung adenocarcinoma
     Dosage: 75.0MG UNKNOWN
  6. DABRAFENIB [Suspect]
     Active Substance: DABRAFENIB
     Indication: Lung adenocarcinoma
     Dosage: 100.0MG UNKNOWN
  7. TRAMETINIB [Suspect]
     Active Substance: TRAMETINIB
     Indication: Lung adenocarcinoma
     Dosage: 2.0MG UNKNOWN
  8. CARBOPLATIN [Concomitant]
     Active Substance: CARBOPLATIN
     Indication: Lung adenocarcinoma
  9. PEMETREXED [Concomitant]
     Active Substance: PEMETREXED
     Indication: Lung adenocarcinoma
  10. PREDNISOLONE [Concomitant]
     Active Substance: PREDNISOLONE
  11. PREDNISOLONE [Concomitant]
     Active Substance: PREDNISOLONE

REACTIONS (6)
  - Malignant neoplasm progression [Unknown]
  - Acquired gene mutation [Unknown]
  - BRAF V600E mutation positive [Unknown]
  - Thrombocytopenia [Recovered/Resolved]
  - Interstitial lung disease [Unknown]
  - Pyrexia [Recovered/Resolved]
